FAERS Safety Report 4677560-9 (Version None)
Quarter: 2005Q2

REPORT INFORMATION
  Report Type: 
  Country: None (occurrence: None)
  Receive Date: 20050526
  Receipt Date: 20050526
  Transmission Date: 20051028
  Serious: No
  Sender: FDA-Public Use
  Company Number: None

PATIENT
  Age: 53 Year
  Sex: Male
  Weight: 93.441 kg

DRUGS (5)
  1. ZESTRIL [Suspect]
     Indication: HYPERTENSION
     Dosage: 20 MG DAILY
  2. ASPIRIN [Concomitant]
  3. COLESTIPOL [Concomitant]
  4. FLUOXETINE [Concomitant]
  5. HYDROCHLOROTHIAZIDE [Concomitant]

REACTIONS (5)
  - ARTHROPOD BITE [None]
  - SWELLING FACE [None]
  - SWOLLEN TONGUE [None]
  - URTICARIA [None]
  - WHEEZING [None]
